FAERS Safety Report 9383939 (Version 2)
Quarter: 2013Q3

REPORT INFORMATION
  Report Type: Spontaneous
  Country: US (occurrence: US)
  Receive Date: 20130705
  Receipt Date: 20130711
  Transmission Date: 20140515
  Serious: No
  Sender: FDA-Public Use
  Company Number: US-AMGEN-USASP2013046547

PATIENT
  Age: 83 Year
  Sex: Female

DRUGS (2)
  1. XGEVA [Suspect]
     Indication: METASTASES TO BONE
     Dosage: 120 MG, QMO
     Dates: start: 201304
  2. LETROZOLE [Concomitant]

REACTIONS (5)
  - Loose tooth [Recovered/Resolved]
  - Dry mouth [Unknown]
  - Pain in jaw [Unknown]
  - Oral pain [Unknown]
  - Protein total decreased [Unknown]
